FAERS Safety Report 17585997 (Version 1)
Quarter: 2020Q1

REPORT INFORMATION
  Report Type: Spontaneous
  Country: US (occurrence: US)
  Receive Date: 20200326
  Receipt Date: 20200326
  Transmission Date: 20200409
  Serious: No
  Sender: FDA-Public Use
  Company Number: US-VERTEX PHARMACEUTICALS-2020-006576

PATIENT
  Sex: Male
  Weight: 48 kg

DRUGS (1)
  1. TRIKAFTA [Suspect]
     Active Substance: ELEXACAFTOR\IVACAFTOR\TEZACAFTOR
     Indication: CYSTIC FIBROSIS
     Dosage: 2 TABS IN AM AND 1 TAB IN PM
     Route: 048
     Dates: start: 20200113

REACTIONS (1)
  - Nasopharyngitis [Unknown]

NARRATIVE: CASE EVENT DATE: 2020
